FAERS Safety Report 5226501-4 (Version None)
Quarter: 2007Q1

REPORT INFORMATION
  Report Type: 
  Country: None (occurrence: None)
  Receive Date: 20070201
  Receipt Date: 20070122
  Transmission Date: 20070707
  Serious: Yes (Hospitalization)
  Sender: FDA-Public Use
  Company Number: PL-PFIZER INC-2006125006

PATIENT
  Sex: Male
  Weight: 93 kg

DRUGS (11)
  1. SU-011,248 [Suspect]
     Route: 048
     Dates: start: 20060429, end: 20060526
  2. INSULIN [Concomitant]
     Route: 058
  3. GLICLAZIDE [Concomitant]
     Route: 048
     Dates: start: 20000101, end: 20060101
  4. TRAMADOL HCL [Concomitant]
     Route: 048
     Dates: start: 20060101
  5. ASCORBIC ACID [Concomitant]
     Route: 048
     Dates: start: 20060101
  6. IRON [Concomitant]
     Route: 048
     Dates: start: 20060601
  7. THIAMINE [Concomitant]
     Route: 048
     Dates: start: 20060601
  8. CARVEDILOL [Concomitant]
     Route: 048
     Dates: start: 20060601
  9. BROMAZEPAM [Concomitant]
     Route: 048
     Dates: start: 20060601
  10. THEOPHYLLINE [Concomitant]
     Route: 048
     Dates: start: 20060601
  11. AMLODIPINE [Concomitant]
     Route: 048
     Dates: start: 20060601

REACTIONS (2)
  - ATRIAL FIBRILLATION [None]
  - PULMONARY OEDEMA [None]
